FAERS Safety Report 14635925 (Version 1)
Quarter: 2018Q1

REPORT INFORMATION
  Report Type: Report from Study
  Country: IN (occurrence: IN)
  Receive Date: 20180314
  Receipt Date: 20180314
  Transmission Date: 20180509
  Serious: Yes (Other)
  Sender: FDA-Public Use
  Company Number: IN-UCBSA-2018011154

PATIENT
  Age: 19 Year
  Sex: Female
  Weight: 45 kg

DRUGS (1)
  1. LEVETIRACETAM. [Suspect]
     Active Substance: LEVETIRACETAM
     Indication: EPILEPSY
     Dosage: 500 MG, 2X/DAY (BID)
     Route: 048
     Dates: start: 2017

REACTIONS (5)
  - Mood swings [Unknown]
  - Aggression [Unknown]
  - Seizure [Recovered/Resolved]
  - Face injury [Unknown]
  - Head injury [Unknown]

NARRATIVE: CASE EVENT DATE: 201802
